FAERS Safety Report 15760965 (Version 2)
Quarter: 2018Q4

REPORT INFORMATION
  Report Type: Spontaneous
  Country: US (occurrence: US)
  Receive Date: 20181226
  Receipt Date: 20181227
  Transmission Date: 20190205
  Serious: No
  Sender: FDA-Public Use
  Company Number: US-PFIZER INC-2018529086

PATIENT
  Age: 69 Year
  Sex: Female

DRUGS (1)
  1. SOMAVERT [Suspect]
     Active Substance: PEGVISOMANT
     Indication: OSTEOPENIA
     Dosage: 10 MG, DAILY
     Route: 058

REACTIONS (2)
  - Blood triglycerides increased [Unknown]
  - Product use in unapproved indication [Unknown]
